FAERS Safety Report 4938781-0 (Version None)
Quarter: 2006Q1

REPORT INFORMATION
  Report Type: 
  Country: None (occurrence: None)
  Receive Date: 20060309
  Receipt Date: 20060227
  Transmission Date: 20060701
  Serious: Yes (Hospitalization)
  Sender: FDA-Public Use
  Company Number: DK-ABBOTT-06P-044-0326670-00

PATIENT
  Age: 48 Year
  Sex: Female

DRUGS (8)
  1. NORVIR [Suspect]
     Indication: HIV INFECTION
  2. NORVIR [Suspect]
  3. SAQUINAVIR [Suspect]
     Indication: HIV INFECTION
  4. SAQUINAVIR [Suspect]
  5. LAMIVUDINE [Suspect]
     Indication: HIV INFECTION
  6. LAMIVUDINE [Suspect]
  7. EFAVIRENZ [Suspect]
     Indication: HIV INFECTION
  8. EFAVIRENZ [Suspect]

REACTIONS (1)
  - DIABETIC KETOACIDOSIS [None]
